FAERS Safety Report 8025691-8 (Version None)
Quarter: 2012Q1

REPORT INFORMATION
  Report Type: 
  Country: None (occurrence: None)
  Receive Date: 20120105
  Receipt Date: 20111227
  Transmission Date: 20120608
  Serious: Yes (Other)
  Sender: FDA-Public Use
  Company Number: US-ASTRAZENECA-2009SE07902

PATIENT
  Age: 75 Year
  Sex: Female

DRUGS (1)
  1. NEXIUM [Suspect]
     Route: 048

REACTIONS (6)
  - FALL [None]
  - JOINT LOCK [None]
  - ARTHRITIS [None]
  - MOBILITY DECREASED [None]
  - HIP FRACTURE [None]
  - PAIN [None]
